FAERS Safety Report 6457424-0 (Version None)
Quarter: 2009Q4

REPORT INFORMATION
  Report Type: 
  Country: None (occurrence: None)
  Receive Date: 20091125
  Receipt Date: 20091118
  Transmission Date: 20100525
  Serious: Yes (Other)
  Sender: FDA-Public Use
  Company Number: US-CELGENEUS-163-50794-09111583

PATIENT
  Sex: Female

DRUGS (1)
  1. VIDAZA [Suspect]
     Indication: DRUG USE FOR UNKNOWN INDICATION
     Route: 051

REACTIONS (3)
  - EXTRAVASATION [None]
  - INJECTION SITE NECROSIS [None]
  - INJECTION SITE ULCER [None]
